FAERS Safety Report 7036022-4 (Version None)
Quarter: 2010Q4

REPORT INFORMATION
  Report Type: 
  Country: None (occurrence: None)
  Receive Date: 20101008
  Receipt Date: 20101001
  Transmission Date: 20110411
  Serious: Yes (Hospitalization)
  Sender: FDA-Public Use
  Company Number: US-US-EMD SERONO, INC.-234515K09USA

PATIENT
  Sex: Female
  Weight: 64 kg

DRUGS (17)
  1. REBIF [Suspect]
     Indication: RELAPSING-REMITTING MULTIPLE SCLEROSIS
     Route: 058
     Dates: start: 20050101, end: 20090213
  2. REBIF [Suspect]
     Route: 058
  3. KEPPRA [Concomitant]
     Route: 065
     Dates: end: 20090401
  4. GABAPENTIN [Concomitant]
     Route: 065
  5. METFORMIN [Concomitant]
     Route: 065
  6. LEVOTHYROXINE [Concomitant]
     Route: 065
  7. PAROXETINE [Concomitant]
     Route: 065
  8. PAROXETINE [Concomitant]
     Route: 065
  9. CRESTOR [Concomitant]
     Route: 065
  10. NITROFURANTOIN [Concomitant]
     Route: 065
  11. BONIVA [Concomitant]
     Route: 065
  12. BACLOFEN [Concomitant]
     Route: 065
  13. VITAMIN B-12 [Concomitant]
     Route: 065
  14. VESICARE [Concomitant]
     Route: 065
  15. TRICOR [Concomitant]
     Route: 065
  16. BISACODYL [Concomitant]
     Route: 065
  17. SENOKOT [Concomitant]

REACTIONS (10)
  - ASTHENIA [None]
  - BUNDLE BRANCH BLOCK [None]
  - DEPRESSION [None]
  - DIZZINESS [None]
  - FEELING HOT [None]
  - INJECTION SITE ERYTHEMA [None]
  - INJECTION SITE PAIN [None]
  - INJECTION SITE PRURITUS [None]
  - INJECTION SITE REACTION [None]
  - SYNCOPE [None]
